FAERS Safety Report 17190193 (Version 1)
Quarter: 2019Q4

REPORT INFORMATION
  Report Type: Spontaneous
  Country: US (occurrence: US)
  Receive Date: 20191223
  Receipt Date: 20191223
  Transmission Date: 20200122
  Serious: No
  Sender: FDA-Public Use
  Company Number: US-GLAXOSMITHKLINE-US2019232921

PATIENT
  Age: 59 Year
  Sex: Female

DRUGS (1)
  1. NICODERM CQ [Suspect]
     Active Substance: NICOTINE
     Indication: SMOKING CESSATION THERAPY
     Dosage: UNK
     Dates: start: 20191202, end: 20191218

REACTIONS (8)
  - Application site reaction [Unknown]
  - Drug ineffective [Unknown]
  - Application site ulcer [Unknown]
  - Application site exfoliation [Unknown]
  - Application site pain [Unknown]
  - Application site erosion [Unknown]
  - Application site haemorrhage [Unknown]
  - Application site pruritus [Unknown]

NARRATIVE: CASE EVENT DATE: 20191202
